FAERS Safety Report 16706313 (Version 3)
Quarter: 2019Q3

REPORT INFORMATION
  Report Type: Spontaneous
  Country: US (occurrence: US)
  Receive Date: 20190815
  Receipt Date: 20190820
  Transmission Date: 20191004
  Serious: Yes (Other)
  Sender: FDA-Public Use
  Company Number: US-PFIZER INC-2019345243

PATIENT
  Age: 53 Year
  Sex: Male
  Weight: 79.82 kg

DRUGS (4)
  1. NICOTROL [Suspect]
     Active Substance: NICOTINE
     Indication: SMOKING CESSATION THERAPY
     Dosage: UNK, AS NEEDED
     Dates: end: 201906
  2. LEVEMIR [Concomitant]
     Active Substance: INSULIN DETEMIR
     Indication: DIABETES MELLITUS
     Dosage: 120 IU, 1X/DAY
  3. NICOTROL [Suspect]
     Active Substance: NICOTINE
     Dosage: UNK
     Dates: start: 2018, end: 201908
  4. NOVOLOG [Concomitant]
     Active Substance: INSULIN ASPART
     Indication: DIABETES MELLITUS
     Dosage: UNK

REACTIONS (8)
  - Oral discomfort [Unknown]
  - Stomatitis [Unknown]
  - Seizure [Not Recovered/Not Resolved]
  - Oral pain [Not Recovered/Not Resolved]
  - Throat irritation [Not Recovered/Not Resolved]
  - Erythema [Unknown]
  - Oral disorder [Unknown]
  - Oral mucosal erythema [Not Recovered/Not Resolved]

NARRATIVE: CASE EVENT DATE: 2018
